FAERS Safety Report 6266874-7 (Version None)
Quarter: 2009Q3

REPORT INFORMATION
  Report Type: 
  Country: None (occurrence: None)
  Receive Date: 20090714
  Receipt Date: 20090702
  Transmission Date: 20100115
  Serious: Yes (Disabling)
  Sender: FDA-Public Use
  Company Number: JP-ASTRAZENECA-2009SE02476

PATIENT
  Age: 49 Year
  Sex: Male
  Weight: 64 kg

DRUGS (8)
  1. ANAPEINE [Suspect]
     Indication: ANALGESIA
     Dosage: 4 ML/H
     Route: 008
     Dates: start: 20090601, end: 20090605
  2. NORVASC [Concomitant]
     Indication: HYPERTENSION
     Route: 048
     Dates: start: 20090101
  3. CARDENALIN [Concomitant]
     Indication: HYPERTENSION
     Route: 048
     Dates: start: 20090101
  4. XYLOCAINE [Concomitant]
     Indication: EPIDURAL TEST DOSE
     Route: 008
     Dates: start: 20090529, end: 20090529
  5. CEZ [Concomitant]
     Route: 041
     Dates: start: 20090601
  6. INOVAN [Concomitant]
     Dosage: DOSE UNKNOWN
     Route: 065
     Dates: start: 20090601, end: 20090601
  7. ALPROSTADIL [Concomitant]
     Dosage: NUMBER OF SEPARATE DOSES UNKNOWN
     Route: 041
     Dates: start: 20090601, end: 20090605
  8. HANP [Concomitant]
     Dosage: NUMBER OF SEPARATE DOSES UNKNOWN
     Route: 041
     Dates: start: 20090601, end: 20090605

REACTIONS (1)
  - CAUDA EQUINA SYNDROME [None]
